FAERS Safety Report 18982581 (Version 2)
Quarter: 2021Q1

REPORT INFORMATION
  Report Type: Spontaneous
  Country: JP (occurrence: JP)
  Receive Date: 20210308
  Receipt Date: 20210330
  Transmission Date: 20210420
  Serious: Yes (Life-Threatening, Hospitalization, Other)
  Sender: FDA-Public Use
  Company Number: JP-PFIZER INC-2021220386

PATIENT
  Age: 77 Year
  Sex: Male
  Weight: 77 kg

DRUGS (8)
  1. XELJANZ [Suspect]
     Active Substance: TOFACITINIB CITRATE
     Dosage: 5 MG, ALTERNATE DAY
     Route: 048
     Dates: start: 20140609, end: 20210225
  2. CELECOX [Concomitant]
     Active Substance: CELECOXIB
     Indication: RHEUMATOID ARTHRITIS
     Dosage: 100 MG, 2X/DAY
     Route: 048
     Dates: start: 20130204
  3. LYRICA [Concomitant]
     Active Substance: PREGABALIN
     Indication: RHEUMATOID ARTHRITIS
     Dosage: 25 MG, 2X/DAY
     Route: 048
     Dates: start: 20180508, end: 20191219
  4. ISCOTIN [Concomitant]
     Active Substance: ISONIAZID
     Indication: ANTIBIOTIC PROPHYLAXIS
     Dosage: 300 MG, 1X/DAY
     Route: 048
     Dates: start: 20130401, end: 20200213
  5. CALCIUM L?ASPARTATE [Concomitant]
     Indication: OSTEOPOROSIS
     Dosage: 200 MG, 3X/DAY
     Route: 048
     Dates: start: 20190722, end: 20210225
  6. NEXIUM [Concomitant]
     Active Substance: ESOMEPRAZOLE MAGNESIUM
     Indication: GASTROOESOPHAGEAL REFLUX DISEASE
     Dosage: 20 MG, 1X/DAY
     Route: 048
     Dates: start: 20130204
  7. XELJANZ [Suspect]
     Active Substance: TOFACITINIB CITRATE
     Indication: RHEUMATOID ARTHRITIS
     Dosage: 5 MG, 1X/DAY
     Route: 048
     Dates: start: 20140414, end: 20140609
  8. ALFACALCIDOL [Concomitant]
     Active Substance: ALFACALCIDOL
     Indication: OSTEOPOROSIS
     Dosage: 0.5 UG, 1X/DAY
     Route: 048
     Dates: start: 20190722

REACTIONS (30)
  - Gastric cancer stage IV [Not Recovered/Not Resolved]
  - Blood alkaline phosphatase increased [Unknown]
  - Blood lactate dehydrogenase increased [Unknown]
  - Neutrophil count decreased [Unknown]
  - Blood chloride increased [Unknown]
  - Gamma-glutamyltransferase increased [Unknown]
  - Metastases to pancreas [Not Recovered/Not Resolved]
  - Alanine aminotransferase increased [Unknown]
  - Glucose urine present [Unknown]
  - Mean cell haemoglobin increased [Unknown]
  - Blood glucose increased [Unknown]
  - Blood triglycerides increased [Unknown]
  - Off label use [Unknown]
  - Taste disorder [Unknown]
  - Blood albumin decreased [Unknown]
  - Haemoglobin increased [Unknown]
  - Occult blood positive [Unknown]
  - Monocyte count increased [Unknown]
  - Platelet count decreased [Unknown]
  - Protein urine present [Unknown]
  - Blood urine present [Unknown]
  - Creatine urine increased [Unknown]
  - Haematocrit increased [Unknown]
  - Pleural effusion [Not Recovered/Not Resolved]
  - Stomatitis [Unknown]
  - Decreased appetite [Unknown]
  - White blood cell count decreased [Unknown]
  - Aspartate aminotransferase increased [Unknown]
  - Mean cell volume increased [Unknown]
  - Red blood cell sedimentation rate increased [Unknown]

NARRATIVE: CASE EVENT DATE: 201404
